FAERS Safety Report 4471982-7 (Version None)
Quarter: 2004Q4

REPORT INFORMATION
  Report Type: 
  Country: None (occurrence: None)
  Receive Date: 20041007
  Receipt Date: 20041001
  Transmission Date: 20050328
  Serious: Yes (Other)
  Sender: FDA-Public Use
  Company Number: IN-JNJFOC-20040908054

PATIENT
  Age: 58 Year
  Sex: Female

DRUGS (1)
  1. ACETAMINOPHEN [Suspect]
     Dosage: 500 MG, 1 IN 1 TOTAL, ORAL
     Route: 048

REACTIONS (3)
  - ANAPHYLACTIC SHOCK [None]
  - DYSPHONIA [None]
  - RHONCHI [None]
